FAERS Safety Report 14958944 (Version 4)
Quarter: 2019Q1

REPORT INFORMATION
  Report Type: Report from Study
  Country: None (occurrence: US)
  Receive Date: 20180531
  Receipt Date: 20190103
  Transmission Date: 20190417
  Serious: Yes (Hospitalization, Other)
  Sender: FDA-Public Use
  Company Number: US-ABBVIE-18K-163-2373270-00

PATIENT
  Sex: Female
  Weight: 137.11 kg

DRUGS (4)
  1. OXYCODONE [Suspect]
     Active Substance: OXYCODONE
     Indication: PAIN IN EXTREMITY
     Route: 065
     Dates: start: 201804, end: 201804
  2. HUMIRA [Suspect]
     Active Substance: ADALIMUMAB
     Indication: RHEUMATOID ARTHRITIS
     Route: 058
  3. HUMIRA [Suspect]
     Active Substance: ADALIMUMAB
     Route: 058
     Dates: start: 2014
  4. SYNTHROID [Concomitant]
     Active Substance: LEVOTHYROXINE SODIUM
     Indication: HYPOTHYROIDISM

REACTIONS (15)
  - Adhesion [Recovered/Resolved]
  - Joint range of motion decreased [Recovering/Resolving]
  - Joint noise [Recovered/Resolved]
  - Fall [Unknown]
  - Muscular weakness [Recovering/Resolving]
  - Rotator cuff syndrome [Recovering/Resolving]
  - Tissue rupture [Recovered/Resolved]
  - Cartilage injury [Recovered/Resolved]
  - Muscle rupture [Recovered/Resolved]
  - Constipation [Recovered/Resolved]
  - Rheumatoid arthritis [Unknown]
  - Pain in extremity [Recovering/Resolving]
  - Psoriasis [Not Recovered/Not Resolved]
  - Condition aggravated [Unknown]
  - Nausea [Recovered/Resolved]

NARRATIVE: CASE EVENT DATE: 201511
